FAERS Safety Report 7957435 (Version 2)
Quarter: 2012Q4

REPORT INFORMATION
  Report Type: 
  Country: VE (occurrence: VE)
  Receive Date: 20110524
  Receipt Date: 20121231
  Transmission Date: 20130627
  Serious: Yes (Death, Hospitalization, Other)
  Sender: FDA-Public Use
  Company Number: PHHY2011VE43419

PATIENT
  Age: 58 None
  Sex: Male

DRUGS (1)
  1. DIOVAN [Suspect]
     Indication: HYPERTENSION
     Dosage: 160 mg, daily
     Route: 048

REACTIONS (5)
  - Procedural complication [Fatal]
  - Arrhythmia [Recovering/Resolving]
  - Diabetes mellitus [Not Recovered/Not Resolved]
  - Cardiac infection [Not Recovered/Not Resolved]
  - Dyspnoea [Not Recovered/Not Resolved]
